FAERS Safety Report 4613424-4 (Version None)
Quarter: 2005Q1

REPORT INFORMATION
  Report Type: 
  Country: None (occurrence: None)
  Receive Date: 20050318
  Receipt Date: 20050318
  Transmission Date: 20050727
  Serious: Yes (Other)
  Sender: FDA-Public Use
  Company Number: None

PATIENT
  Sex: Female
  Weight: 93.8946 kg

DRUGS (2)
  1. PERCODAN [Suspect]
     Indication: OSTEOARTHRITIS
     Dosage: 5 MGM QID PO
     Route: 048
     Dates: start: 19841126
  2. PERCODAN [Suspect]
     Indication: PLANTAR FASCIITIS
     Dosage: 5 MGM QID PO
     Route: 048
     Dates: start: 19841126

REACTIONS (3)
  - NAUSEA [None]
  - PHARMACEUTICAL PRODUCT COMPLAINT [None]
  - VOMITING [None]
